FAERS Safety Report 9686075 (Version 2)
Quarter: 2013Q4

REPORT INFORMATION
  Report Type: Spontaneous
  Country: None (occurrence: US)
  Receive Date: 20131113
  Receipt Date: 20131113
  Transmission Date: 20140711
  Serious: No
  Sender: FDA-Public Use
  Company Number: US-ALLERGAN-1216924US

PATIENT
  Age: 80 Year
  Sex: Female

DRUGS (7)
  1. COMBIGAN[R] [Suspect]
     Indication: GLAUCOMA
     Dosage: 1 GTT, BID
     Route: 047
  2. COMBIGAN[R] [Suspect]
     Dosage: 1 UNK, UNK
     Route: 047
     Dates: start: 201210
  3. LUMIGAN [Concomitant]
     Indication: GLAUCOMA
     Dosage: 1 GTT, QD
     Route: 047
  4. LOSARTAN [Concomitant]
     Indication: HYPERTENSION
     Dosage: UNK UNK, QD
     Route: 048
  5. HCTZ [Concomitant]
     Indication: HYPERTENSION
     Dosage: UNK, QD
     Route: 048
  6. VITAMIN D                          /00107901/ [Concomitant]
     Indication: SUPPLEMENTATION THERAPY
     Dosage: UNK UNK, QD
     Route: 048
  7. BABY ASA [Concomitant]
     Indication: PRODUCT USED FOR UNKNOWN INDICATION
     Dosage: UNK, QD
     Route: 048

REACTIONS (4)
  - Herpes zoster [Unknown]
  - Erythema of eyelid [Unknown]
  - Eyelids pruritus [Unknown]
  - Vision blurred [Unknown]
